FAERS Safety Report 7785476-4 (Version None)
Quarter: 2011Q3

REPORT INFORMATION
  Report Type: 
  Country: None (occurrence: None)
  Receive Date: 20110929
  Receipt Date: 20110925
  Transmission Date: 20111222
  Serious: Yes (Life-Threatening, Other)
  Sender: FDA-Public Use
  Company Number: PHHY2011IL85312

PATIENT
  Sex: Female

DRUGS (4)
  1. EXFORGE [Suspect]
     Dosage: 1 DF(80 MG VALSAR AND 5 MG AMLO), EVERY OTHER DAY
     Route: 048
  2. ATENOLOL [Concomitant]
     Indication: HYPERTENSION
     Dosage: 25 MG, QD
     Route: 048
  3. ATENOLOL [Concomitant]
     Dosage: 12.5 MG, BID
     Route: 048
  4. EXFORGE [Suspect]
     Indication: HYPERTENSION
     Dosage: 1 DF(80 MG VALSAR AND 5 MG AMLO), DAILY
     Route: 048

REACTIONS (6)
  - SCRATCH [None]
  - BLOOD PRESSURE DECREASED [None]
  - DRY THROAT [None]
  - HAEMATOMA [None]
  - DRUG INEFFECTIVE [None]
  - FALL [None]
